FAERS Safety Report 16028022 (Version 1)
Quarter: 2019Q1

REPORT INFORMATION
  Report Type: Spontaneous
  Country: US (occurrence: US)
  Receive Date: 20190304
  Receipt Date: 20190304
  Transmission Date: 20190418
  Serious: No
  Sender: FDA-Public Use
  Company Number: US-BIO PRODUCTS LABORATORY LTD-2063478

PATIENT
  Age: 54 Year
  Sex: Male
  Weight: 107 kg

DRUGS (6)
  1. TORSEMIDE. [Concomitant]
     Active Substance: TORSEMIDE
  2. THEOPHYLLINE [Concomitant]
     Active Substance: THEOPHYLLINE ANHYDROUS
  3. PREDNISONE. [Concomitant]
     Active Substance: PREDNISONE
  4. METOLAZONE. [Concomitant]
     Active Substance: METOLAZONE
  5. DIURECTICS [Concomitant]
  6. GENERIC IVIG [Suspect]
     Active Substance: HUMAN IMMUNOGLOBULIN G
     Indication: CAPILLARY LEAK SYNDROME
     Route: 042

REACTIONS (6)
  - Off label use [Recovered/Resolved]
  - Therapeutic product effective for unapproved indication [Recovered/Resolved]
  - Oedema [None]
  - Insurance issue [None]
  - Weight fluctuation [None]
  - No adverse event [Recovered/Resolved]
